FAERS Safety Report 4315851-1 (Version None)
Quarter: 2004Q1

REPORT INFORMATION
  Report Type: 
  Country: None (occurrence: None)
  Receive Date: 20040310
  Receipt Date: 20040224
  Transmission Date: 20041129
  Serious: Yes (Death)
  Sender: FDA-Public Use
  Company Number: JP-JNJFOC-20040205704

PATIENT
  Age: 68 Year
  Sex: Male

DRUGS (9)
  1. FENTANYL [Suspect]
     Indication: CANCER PAIN
     Dosage: 1.25 MG, 1 IN 3 DAY, TRANSDERMAL; 2.5 MG, 1 IN 3 DAY, TRANSDERMAL
     Route: 062
     Dates: start: 20040209, end: 20040207
  2. FENTANYL [Suspect]
     Indication: CANCER PAIN
     Dosage: 1.25 MG, 1 IN 3 DAY, TRANSDERMAL; 2.5 MG, 1 IN 3 DAY, TRANSDERMAL
     Route: 062
     Dates: start: 20040202, end: 20040209
  3. DICLOFENAC SODIUM [Concomitant]
  4. PROCHLORPERAZINE MALEATE (PROCHLORPERAZINE MALEATE) [Concomitant]
  5. DOMPERIDONE (DOMPERIDONE) [Concomitant]
  6. FUROSEMIDE [Concomitant]
  7. BETAMETHASONE [Concomitant]
  8. DOMPERIDONE (DOMERIDONE) [Concomitant]
  9. OCTREOTIDE ACETATE (OCTREOTIDE ACETATE) [Concomitant]

REACTIONS (2)
  - HEPATIC FAILURE [None]
  - METASTASES TO LIVER [None]
